FAERS Safety Report 14310465 (Version 1)
Quarter: 2017Q4

REPORT INFORMATION
  Report Type: Spontaneous
  Country: US (occurrence: US)
  Receive Date: 20171220
  Receipt Date: 20171220
  Transmission Date: 20180321
  Serious: Yes (Hospitalization)
  Sender: FDA-Public Use
  Company Number: US-ARALEZ PHARMACEUTICALS R+D INC.-2017-ARA-002065

PATIENT
  Age: 56 Year
  Sex: Female
  Weight: 72.56 kg

DRUGS (4)
  1. BRILINTA [Suspect]
     Active Substance: TICAGRELOR
     Indication: STENT PLACEMENT
  2. LIPITOR [Concomitant]
     Active Substance: ATORVASTATIN CALCIUM
     Indication: PRODUCT USED FOR UNKNOWN INDICATION
     Dosage: UNK
  3. TOPROL XL [Suspect]
     Active Substance: METOPROLOL SUCCINATE
     Indication: HYPERTENSION
     Dosage: UNK
     Dates: start: 2014
  4. BRILINTA [Suspect]
     Active Substance: TICAGRELOR
     Indication: MYOCARDIAL INFARCTION
     Dosage: 90 MG, BID
     Dates: start: 20171213

REACTIONS (5)
  - Hypertension [Unknown]
  - Dyspnoea [Unknown]
  - Chest discomfort [Unknown]
  - Myocardial infarction [Unknown]
  - Fatigue [Unknown]

NARRATIVE: CASE EVENT DATE: 201711
